FAERS Safety Report 6870171-6 (Version None)
Quarter: 2010Q3

REPORT INFORMATION
  Report Type: 
  Country: None (occurrence: None)
  Receive Date: 20100721
  Receipt Date: 20100715
  Transmission Date: 20110219
  Serious: Yes (Other)
  Sender: FDA-Public Use
  Company Number: RB-21286-2009

PATIENT
  Sex: Female

DRUGS (5)
  1. SUBOXONE [Suspect]
     Indication: DRUG DEPENDENCE
     Dosage: (8 MG TID SUBLINGUAL), (8 MG BID SUBLINGUAL)
     Route: 060
     Dates: start: 20090326, end: 20090824
  2. SUBOXONE [Suspect]
     Indication: DRUG DEPENDENCE
     Dosage: (8 MG TID SUBLINGUAL), (8 MG BID SUBLINGUAL)
     Route: 060
     Dates: start: 20090825, end: 20090927
  3. SUBUTEX [Suspect]
     Indication: DRUG DEPENDENCE
     Dosage: (8 MG QD SUBLINGUAL)
     Route: 060
     Dates: start: 20090928
  4. XANAX [Suspect]
     Indication: ANXIETY
     Dates: end: 20090901
  5. LUNESTA [Concomitant]

REACTIONS (4)
  - CONVULSION [None]
  - DRUG EXPOSURE DURING PREGNANCY [None]
  - PREGNANCY [None]
  - TREATMENT NONCOMPLIANCE [None]
